FAERS Safety Report 15330133 (Version 2)
Quarter: 2018Q4

REPORT INFORMATION
  Report Type: Spontaneous
  Country: BR (occurrence: BR)
  Receive Date: 20180829
  Receipt Date: 20181123
  Transmission Date: 20190204
  Serious: Yes (Other)
  Sender: FDA-Public Use
  Company Number: PHHY2018BR083254

PATIENT
  Age: 47 Year
  Sex: Male
  Weight: 78 kg

DRUGS (6)
  1. PREGABALIN. [Concomitant]
     Active Substance: PREGABALIN
     Indication: POLYNEUROPATHY
     Dosage: 300 MG, QD
     Route: 048
     Dates: start: 2007
  2. COSENTYX [Suspect]
     Active Substance: SECUKINUMAB
     Indication: PSORIATIC ARTHROPATHY
     Dosage: 2 DF, QMO (8 LOADING DOSES AND TWO MAINTANANCE DOSES)
     Route: 058
     Dates: start: 201711, end: 201809
  3. TENOFOVIR [Concomitant]
     Active Substance: TENOFOVIR
     Indication: HIV INFECTION
     Dosage: UNK UNK, QD
     Route: 048
     Dates: start: 2007
  4. ARADOIS [Concomitant]
     Active Substance: LOSARTAN POTASSIUM
     Indication: HYPERTENSION
     Dosage: UNK UNK, QD
     Route: 048
     Dates: start: 2007
  5. NEVIRAPINE. [Concomitant]
     Active Substance: NEVIRAPINE
     Indication: HIV INFECTION
     Dosage: UNK UNK, QD
     Route: 048
     Dates: start: 2007
  6. LAMIVUDINE. [Concomitant]
     Active Substance: LAMIVUDINE
     Indication: HIV INFECTION
     Dosage: UNK UNK, QD
     Route: 048
     Dates: start: 2007

REACTIONS (14)
  - Trigeminal neuralgia [Not Recovered/Not Resolved]
  - Oral discomfort [Recovered/Resolved]
  - Glossodynia [Not Recovered/Not Resolved]
  - Neurotoxicity [Not Recovered/Not Resolved]
  - Periodontal inflammation [Recovered/Resolved]
  - Weight decreased [Unknown]
  - Rhinalgia [Not Recovered/Not Resolved]
  - Bone pain [Not Recovered/Not Resolved]
  - Feeding disorder [Unknown]
  - Toothache [Recovered/Resolved]
  - Aphthous ulcer [Recovered/Resolved]
  - Dry mouth [Not Recovered/Not Resolved]
  - Ulcer [Recovered/Resolved]
  - Polyneuropathy [Recovered/Resolved with Sequelae]

NARRATIVE: CASE EVENT DATE: 201802
